FAERS Safety Report 4650167-5 (Version None)
Quarter: 2005Q2

REPORT INFORMATION
  Report Type: 
  Country: None (occurrence: None)
  Receive Date: 20050428
  Receipt Date: 20050422
  Transmission Date: 20051028
  Serious: Yes (Other)
  Sender: FDA-Public Use
  Company Number: 2005063516

PATIENT
  Age: 70 Year
  Sex: Female

DRUGS (1)
  1. LIPITOR [Suspect]
     Indication: HYPERCHOLESTEROLAEMIA
     Dosage: 20 MG (1 IN 1 D), ORAL
     Route: 048
     Dates: start: 20050215

REACTIONS (1)
  - RENAL FAILURE [None]
